FAERS Safety Report 9661021 (Version 1)
Quarter: 2013Q4

REPORT INFORMATION
  Report Type: Spontaneous
  Country: US (occurrence: US)
  Receive Date: 20131031
  Receipt Date: 20131031
  Transmission Date: 20140711
  Serious: Yes (Hospitalization, Other)
  Sender: FDA-Public Use
  Company Number: US-GLAXOSMITHKLINE-A1040523A

PATIENT
  Age: 63 Year
  Sex: Female
  Weight: 98.3 kg

DRUGS (14)
  1. VOTRIENT [Suspect]
     Indication: NEOPLASM MALIGNANT
     Dosage: 800MG PER DAY
     Route: 048
     Dates: start: 20130815
  2. SPIRONOLACTONE [Concomitant]
  3. PHENERGAN [Concomitant]
  4. LEXAPRO [Concomitant]
  5. HYDROCODONE [Concomitant]
  6. DIFLUCAN [Concomitant]
  7. AMBIEN [Concomitant]
  8. CLONIDINE [Concomitant]
  9. DENOSUMAB [Concomitant]
  10. FLUCONAZOLE [Concomitant]
  11. LOVENOX [Concomitant]
  12. MELOXICAM [Concomitant]
  13. XANAX [Concomitant]
  14. XARELTO [Concomitant]

REACTIONS (5)
  - Cerebrovascular accident [Recovering/Resolving]
  - Bone lesion [Unknown]
  - Skin lesion [Unknown]
  - Hypertension [Unknown]
  - Cardiac failure congestive [Unknown]
